FAERS Safety Report 14155709 (Version 2)
Quarter: 2017Q4

REPORT INFORMATION
  Report Type: Spontaneous
  Country: JP (occurrence: JP)
  Receive Date: 20171103
  Receipt Date: 20171124
  Transmission Date: 20180321
  Serious: Yes (Other)
  Sender: FDA-Public Use
  Company Number: JP-ROCHE-2017026

PATIENT
  Age: 48 Year
  Sex: Male

DRUGS (10)
  1. FLUOROURACIL. [Concomitant]
     Active Substance: FLUOROURACIL
     Indication: COLON CANCER
     Dosage: 23 COURSE?DOSAGE IS UNCERTAIN.
     Route: 040
     Dates: start: 20130122
  2. FLUOROURACIL. [Concomitant]
     Active Substance: FLUOROURACIL
     Indication: COLON CANCER
     Dosage: 23 COURSE?DOSAGE IS UNCERTAIN.
     Route: 041
     Dates: start: 20130122
  3. AVASTIN [Suspect]
     Active Substance: BEVACIZUMAB
     Indication: COLON CANCER
     Dosage: SINGLE DOSE
     Route: 041
     Dates: start: 20120626, end: 20120626
  4. AVASTIN [Suspect]
     Active Substance: BEVACIZUMAB
     Indication: COLON CANCER
     Route: 041
     Dates: start: 20120828, end: 20130108
  5. AVASTIN [Suspect]
     Active Substance: BEVACIZUMAB
     Indication: COLON CANCER
     Dosage: 23 COURSE
     Route: 041
     Dates: start: 20130122, end: 20130722
  6. ELPLAT [Suspect]
     Active Substance: OXALIPLATIN
     Indication: COLON CANCER
     Dosage: DATE OF MOST RECENT DOSE: 08/JAN/2013
     Route: 041
     Dates: start: 20120626
  7. XELODA [Suspect]
     Active Substance: CAPECITABINE
     Indication: COLON CANCER
     Route: 048
     Dates: start: 20120626, end: 20130108
  8. IRINOTECAN HYDROCHLORIDE. [Concomitant]
     Active Substance: IRINOTECAN HYDROCHLORIDE
     Indication: COLON CANCER
     Dosage: 23 COURSE?DOSAGE IS UNCERTAIN.
     Route: 041
     Dates: start: 20130122
  9. CALCIUM LEVOFOLINATE [Concomitant]
     Active Substance: LEVOLEUCOVORIN CALCIUM
     Indication: COLON CANCER
     Dosage: 23 COURSE?DOSAGE IS UNCERTAIN.
     Route: 041
     Dates: start: 20130122
  10. STIVARGA [Suspect]
     Active Substance: REGORAFENIB
     Indication: PRODUCT USED FOR UNKNOWN INDICATION
     Route: 065
     Dates: start: 20130722, end: 20130805

REACTIONS (7)
  - Ileal perforation [Unknown]
  - Palmar-plantar erythrodysaesthesia syndrome [Unknown]
  - Impaired healing [Recovering/Resolving]
  - Paraesthesia [Unknown]
  - Paraesthesia oral [Unknown]
  - Paronychia [Unknown]
  - Implant site dehiscence [Recovering/Resolving]

NARRATIVE: CASE EVENT DATE: 20120717
